FAERS Safety Report 6905077-7 (Version None)
Quarter: 2010Q3

REPORT INFORMATION
  Report Type: 
  Country: None (occurrence: None)
  Receive Date: 20100804
  Receipt Date: 20090911
  Transmission Date: 20110219
  Serious: No
  Sender: FDA-Public Use
  Company Number: US-PFIZER INC-2009245381

PATIENT

DRUGS (1)
  1. LYRICA [Suspect]

REACTIONS (4)
  - AFFECT LABILITY [None]
  - ANXIETY [None]
  - CONFUSIONAL STATE [None]
  - MENTAL IMPAIRMENT [None]
